FAERS Safety Report 9572008 (Version 2)
Quarter: 2014Q1

REPORT INFORMATION
  Report Type: Report from Study
  Country: US (occurrence: US)
  Receive Date: 20131001
  Receipt Date: 20140114
  Transmission Date: 20141002
  Serious: Yes (Other)
  Sender: FDA-Public Use
  Company Number: US-US-EMD SERONO, INC.-7239748

PATIENT
  Age: 51 Year
  Sex: Female

DRUGS (1)
  1. REBIF [Suspect]
     Indication: MULTIPLE SCLEROSIS
     Route: 058
     Dates: start: 20130715

REACTIONS (4)
  - Spinal column stenosis [Recovering/Resolving]
  - Irritable bowel syndrome [Recovering/Resolving]
  - Fall [Recovering/Resolving]
  - Post procedural oedema [Recovering/Resolving]
